FAERS Safety Report 15802186 (Version 1)
Quarter: 2019Q1

REPORT INFORMATION
  Report Type: Spontaneous
  Country: US (occurrence: US)
  Receive Date: 20190108
  Receipt Date: 20190108
  Transmission Date: 20190417
  Serious: Yes (Death)
  Sender: FDA-Public Use
  Company Number: None

PATIENT
  Age: 69 Year
  Sex: Male

DRUGS (15)
  1. CLONIDINE. [Concomitant]
     Active Substance: CLONIDINE
  2. LISINOPRIL. [Concomitant]
     Active Substance: LISINOPRIL
  3. METOPROLOL TARTRATE. [Concomitant]
     Active Substance: METOPROLOL TARTRATE
  4. TEKTURNA [Concomitant]
     Active Substance: ALISKIREN HEMIFUMARATE
  5. TRICOR [Concomitant]
     Active Substance: FENOFIBRATE
  6. RENVELA [Concomitant]
     Active Substance: SEVELAMER CARBONATE
  7. ZEMPLAR [Concomitant]
     Active Substance: PARICALCITOL
  8. BENICAR [Concomitant]
     Active Substance: OLMESARTAN MEDOXOMIL
  9. LIPITOR [Concomitant]
     Active Substance: ATORVASTATIN CALCIUM
  10. MIDODRINE [Concomitant]
     Active Substance: MIDODRINE
  11. ALLOPRINOL [Concomitant]
  12. AMIDARONE [Concomitant]
     Active Substance: AMIODARONE
  13. GLIMEPIRIDE. [Concomitant]
     Active Substance: GLIMEPIRIDE
  14. ENTECAVIR. [Suspect]
     Active Substance: ENTECAVIR
     Indication: HEPATITIS B
     Dosage: ?          OTHER FREQUENCY:2X WEEKLY-TUE+THUR;?
     Route: 048
  15. ACTOS [Concomitant]
     Active Substance: PIOGLITAZONE HYDROCHLORIDE

REACTIONS (1)
  - Death [None]

NARRATIVE: CASE EVENT DATE: 20181223
